FAERS Safety Report 11176476 (Version 1)
Quarter: 2015Q2

REPORT INFORMATION
  Report Type: Spontaneous
  Country: US (occurrence: US)
  Receive Date: 20150610
  Receipt Date: 20150610
  Transmission Date: 20150821
  Serious: No
  Sender: FDA-Public Use
  Company Number: US-TEVA-552859USA

PATIENT
  Age: 41 Year
  Sex: Female

DRUGS (1)
  1. TEMOZOLOMIDE. [Suspect]
     Active Substance: TEMOZOLOMIDE
     Dosage: TAKE FOR 5 DAYS OUT OF 28 DAY CYCLE
     Route: 048

REACTIONS (3)
  - Nausea [Unknown]
  - Urticaria [Unknown]
  - Rash [Unknown]
